FAERS Safety Report 10622954 (Version 1)
Quarter: 2014Q4

REPORT INFORMATION
  Report Type: Spontaneous
  Country: FR (occurrence: FR)
  Receive Date: 20141203
  Receipt Date: 20141203
  Transmission Date: 20150529
  Serious: Yes (Disabling)
  Sender: FDA-Public Use
  Company Number: FR-PFIZER INC-2014330833

PATIENT
  Age: 86 Year
  Sex: Female

DRUGS (6)
  1. AVLOCARDYL [Suspect]
     Active Substance: PROPRANOLOL HYDROCHLORIDE
     Indication: TACHYCARDIA
     Dosage: 20 MG, 2X/DAY
     Route: 048
  2. PARIET [Concomitant]
     Active Substance: RABEPRAZOLE SODIUM
     Dosage: UNK
     Route: 065
  3. AVLOCARDYL [Suspect]
     Active Substance: PROPRANOLOL HYDROCHLORIDE
     Dosage: 20 MG IN THE MORNING AND 15 MG AT NIGNT
     Route: 048
     Dates: end: 2014
  4. TENORMIN [Suspect]
     Active Substance: ATENOLOL
     Indication: TACHYCARDIA
     Dosage: UNK
     Route: 065
     Dates: start: 2014
  5. INEXIUM [Concomitant]
     Active Substance: ESOMEPRAZOLE
     Dosage: UNK
     Route: 065
  6. LEVOTHYROX [Concomitant]
     Active Substance: LEVOTHYROXINE
     Dosage: 85 ?G, 1X/DAY
     Route: 065

REACTIONS (2)
  - Polyneuropathy [Not Recovered/Not Resolved]
  - Central nervous system lesion [Not Recovered/Not Resolved]

NARRATIVE: CASE EVENT DATE: 2014
